FAERS Safety Report 24325749 (Version 11)
Quarter: 2025Q3

REPORT INFORMATION
  Report Type: Spontaneous
  Country: EU (occurrence: EU)
  Receive Date: 20240917
  Receipt Date: 20250910
  Transmission Date: 20251020
  Serious: Yes (Other)
  Sender: ALKEM
  Company Number: None

PATIENT
  Age: 37 Year
  Sex: Female

DRUGS (15)
  1. PREGABALIN [Suspect]
     Active Substance: PREGABALIN
     Indication: Bipolar II disorder
     Dosage: 50 MILLIGRAM, QD
     Route: 065
  2. PREGABALIN [Suspect]
     Active Substance: PREGABALIN
     Indication: Alcohol use disorder
     Dosage: 100 MILLIGRAM, QD (DOSE INCREASED)
     Route: 065
  3. PREGABALIN [Suspect]
     Active Substance: PREGABALIN
     Indication: Anxiety
  4. PREGABALIN [Suspect]
     Active Substance: PREGABALIN
     Indication: Depression
  5. PREGABALIN [Suspect]
     Active Substance: PREGABALIN
     Indication: Alcoholism
  6. LAMOTRIGINE [Suspect]
     Active Substance: LAMOTRIGINE
     Indication: Depression
     Route: 065
  7. LAMOTRIGINE [Suspect]
     Active Substance: LAMOTRIGINE
     Indication: Bipolar II disorder
  8. ESCITALOPRAM [Suspect]
     Active Substance: ESCITALOPRAM OXALATE
     Indication: Depression
     Route: 065
  9. LITHIUM [Suspect]
     Active Substance: LITHIUM
     Indication: Mood swings
     Route: 065
  10. LITHIUM [Suspect]
     Active Substance: LITHIUM
     Indication: Depression
  11. LITHIUM [Suspect]
     Active Substance: LITHIUM
     Indication: Bipolar II disorder
  12. QUETIAPINE [Concomitant]
     Active Substance: QUETIAPINE
     Indication: Bipolar II disorder
     Dosage: 150 MILLIGRAM, QD (EVERY 1 DAY) (PROLONGED-RELEASE TABLET)
     Route: 065
  13. QUETIAPINE [Concomitant]
     Active Substance: QUETIAPINE
     Indication: Anxiety
     Dosage: 200 MILLIGRAM, QD (DOSE INCREASED)
     Route: 065
  14. QUETIAPINE [Concomitant]
     Active Substance: QUETIAPINE
     Indication: Alcohol use disorder
  15. QUETIAPINE [Concomitant]
     Active Substance: QUETIAPINE
     Indication: Depression

REACTIONS (12)
  - Self-injurious ideation [Recovering/Resolving]
  - Self-destructive behaviour [Recovered/Resolved]
  - Bipolar II disorder [Unknown]
  - Intentional self-injury [Recovering/Resolving]
  - Depressive symptom [Recovered/Resolved]
  - Suicidal ideation [Recovered/Resolved]
  - Condition aggravated [Recovering/Resolving]
  - Drug ineffective for unapproved indication [Unknown]
  - Drug ineffective [Unknown]
  - Feeling of despair [Recovering/Resolving]
  - Crying [Recovering/Resolving]
  - Off label use [Unknown]
